FAERS Safety Report 12900508 (Version 3)
Quarter: 2016Q4

REPORT INFORMATION
  Report Type: Spontaneous
  Country: US (occurrence: US)
  Receive Date: 20161101
  Receipt Date: 20161222
  Transmission Date: 20170207
  Serious: Yes (Other)
  Sender: FDA-Public Use
  Company Number: US-JNJFOC-20161021656

PATIENT
  Age: 76 Year
  Sex: Male
  Weight: 95.71 kg

DRUGS (16)
  1. DARZALEX [Suspect]
     Active Substance: DARATUMUMAB
     Indication: PLASMA CELL MYELOMA
     Route: 042
     Dates: start: 20161128
  2. GABAPENTIN. [Concomitant]
     Active Substance: GABAPENTIN
     Route: 048
  3. MAGNESIUM [Concomitant]
     Active Substance: MAGNESIUM
     Route: 048
  4. METHYLPREDNISOLONE. [Concomitant]
     Active Substance: METHYLPREDNISOLONE
     Route: 048
  5. ONDANSETRON [Concomitant]
     Active Substance: ONDANSETRON
     Route: 048
  6. ASPRIN [Concomitant]
     Active Substance: ASPIRIN
     Route: 048
  7. CENTRUM SILVER [Concomitant]
     Active Substance: MINERALS\VITAMINS
     Route: 048
  8. POTASSIUM CHLORIDE. [Concomitant]
     Active Substance: POTASSIUM CHLORIDE
     Route: 048
  9. PANTOPRAZOLE SODIUM. [Concomitant]
     Active Substance: PANTOPRAZOLE SODIUM
     Route: 048
  10. SINGULAIR [Concomitant]
     Active Substance: MONTELUKAST SODIUM
     Route: 048
  11. DARZALEX [Suspect]
     Active Substance: DARATUMUMAB
     Indication: PLASMA CELL MYELOMA
     Route: 042
     Dates: start: 20161003
  12. COLACE [Concomitant]
     Active Substance: DOCUSATE SODIUM
     Route: 048
  13. DILTIAZEM HCL [Concomitant]
     Active Substance: DILTIAZEM HYDROCHLORIDE
     Route: 048
  14. TYLENOL [Concomitant]
     Active Substance: ACETAMINOPHEN
     Route: 048
  15. VIT B COMPLEX [Concomitant]
     Route: 048
  16. ACYCLOVIR. [Concomitant]
     Active Substance: ACYCLOVIR
     Route: 048

REACTIONS (2)
  - Infusion site swelling [Recovered/Resolved with Sequelae]
  - Extravasation [Recovered/Resolved with Sequelae]

NARRATIVE: CASE EVENT DATE: 20161024
